FAERS Safety Report 7948839-X (Version None)
Quarter: 2011Q4

REPORT INFORMATION
  Report Type: 
  Country: None (occurrence: None)
  Receive Date: 20111130
  Receipt Date: 20111124
  Transmission Date: 20120403
  Serious: Yes (Hospitalization)
  Sender: FDA-Public Use
  Company Number: TR-ABBOTT-11P-161-0877772-00

PATIENT
  Age: 18 Year
  Sex: Male
  Weight: 75 kg

DRUGS (3)
  1. TARKA [Suspect]
     Indication: SUICIDE ATTEMPT
     Dosage: 180/2MG DAILY
     Route: 048
     Dates: start: 20111122, end: 20111122
  2. DICLOFENAC SODIUM [Suspect]
     Indication: SUICIDE ATTEMPT
     Route: 048
     Dates: start: 20111122, end: 20111122
  3. THEOPHYLLINE [Suspect]
     Indication: SUICIDE ATTEMPT
     Route: 048
     Dates: start: 20111122, end: 20111122

REACTIONS (3)
  - BRADYCARDIA [None]
  - HYPOTENSION [None]
  - SUICIDE ATTEMPT [None]
